FAERS Safety Report 19441471 (Version 1)
Quarter: 2021Q2

REPORT INFORMATION
  Report Type: Spontaneous
  Country: US (occurrence: US)
  Receive Date: 20210618
  Receipt Date: 20210618
  Transmission Date: 20210717
  Serious: Yes (Other)
  Sender: FDA-Public Use
  Company Number: None

PATIENT
  Age: 63 Year
  Sex: Female
  Weight: 67.5 kg

DRUGS (1)
  1. DUPIXENT [Suspect]
     Active Substance: DUPILUMAB
     Indication: ECZEMA
     Dosage: ?          QUANTITY:2 INJECTION(S);OTHER FREQUENCY:BIWEEKLY;OTHER ROUTE:ABDOMEN?

REACTIONS (2)
  - Retinal vein occlusion [None]
  - Retinal haemorrhage [None]

NARRATIVE: CASE EVENT DATE: 20210424
